FAERS Safety Report 24313346 (Version 10)
Quarter: 2025Q1

REPORT INFORMATION
  Report Type: Report from Study
  Country: US (occurrence: US)
  Receive Date: 20240912
  Receipt Date: 20250124
  Transmission Date: 20250409
  Serious: Yes (Hospitalization, Other)
  Sender: SANOFI AVENTIS
  Company Number: US-SA-2024SA263804

PATIENT
  Age: 40 Year
  Sex: Male
  Weight: 83 kg

DRUGS (24)
  1. ALTUVIIIO [Suspect]
     Active Substance: EFANESOCTOCOG ALFA
     Indication: Factor VIII deficiency
     Dosage: 4000 U, QW
     Route: 042
     Dates: start: 20230401
  2. ALTUVIIIO [Suspect]
     Active Substance: EFANESOCTOCOG ALFA
     Indication: Haemorrhage
     Dosage: 4200 (UNITS NOT REPORTED), QW
     Route: 042
     Dates: start: 20230506
  3. ALTUVIIIO [Suspect]
     Active Substance: EFANESOCTOCOG ALFA
     Route: 042
  4. ALTUVIIIO [Suspect]
     Active Substance: EFANESOCTOCOG ALFA
     Dosage: 4205 U (+1- 5%), Q5D
     Route: 042
  5. ALTUVIIIO [Suspect]
     Active Substance: EFANESOCTOCOG ALFA
     Dosage: 4250 U (+/-10%), QW
     Route: 042
  6. ALTUVIIIO [Suspect]
     Active Substance: EFANESOCTOCOG ALFA
     Dosage: 3366 U, Q5D
     Route: 042
  7. ALTUVIIIO [Suspect]
     Active Substance: EFANESOCTOCOG ALFA
     Route: 042
  8. ALTUVIIIO [Suspect]
     Active Substance: EFANESOCTOCOG ALFA
     Dosage: 4000 U, Q5D
     Route: 042
  9. CELEBREX [Concomitant]
     Active Substance: CELECOXIB
  10. TOPROL XL [Concomitant]
     Active Substance: METOPROLOL SUCCINATE
     Indication: Essential hypertension
     Dosage: 1 DF (1 TABLET), QD
     Route: 048
     Dates: start: 20240717, end: 20241008
  11. OMEPRAZOLE [Concomitant]
     Active Substance: OMEPRAZOLE
  12. TIVICAY [Concomitant]
     Active Substance: DOLUTEGRAVIR SODIUM
     Dosage: 1 DF, QD (1 TABLET BY MOUTH)
     Route: 048
     Dates: start: 20240718, end: 20241001
  13. ZOFRAN [Concomitant]
     Active Substance: ONDANSETRON HYDROCHLORIDE
     Indication: Nausea
     Route: 048
     Dates: start: 20231214
  14. ASTELIN [Concomitant]
     Active Substance: AZELASTINE HYDROCHLORIDE
     Indication: Nasal congestion
     Dosage: 1 DF, BID (1 SPRAY BY NASAL ROUTE 2 TIMES DAILY)
     Route: 045
     Dates: start: 20240109
  15. PREZCOBIX [Concomitant]
     Active Substance: COBICISTAT\DARUNAVIR ETHANOLATE
     Dosage: 1 DF, QD (1 TABLET BY MOUTH EVERYDAY)
     Route: 048
     Dates: start: 20240816, end: 20241024
  16. ATACAND [Concomitant]
     Active Substance: CANDESARTAN CILEXETIL
     Indication: Essential hypertension
     Dosage: 1 DF, QD (1 TABLET BY MOUTH DAILY)
     Route: 048
     Dates: start: 20240717, end: 20240911
  17. NEURONTIN [Concomitant]
     Active Substance: GABAPENTIN
     Indication: Arthralgia
     Dosage: 1 DF, HS (1 CAPSULE BY MOUTH NIGHTLY)
     Route: 048
     Dates: start: 20240530
  18. SELENIUM SULFIDE [Concomitant]
     Active Substance: SELENIUM SULFIDE
     Indication: Seborrhoea
     Route: 061
     Dates: start: 20240717
  19. PEPCID [Concomitant]
     Active Substance: FAMOTIDINE
     Indication: Gastrooesophageal reflux disease
     Route: 048
     Dates: start: 20240508
  20. TYLENOL [Concomitant]
     Active Substance: ACETAMINOPHEN
     Indication: Pain
     Route: 048
  21. CELEXA [Concomitant]
     Active Substance: CITALOPRAM HYDROBROMIDE
     Indication: Generalised anxiety disorder
     Dosage: 1.5 DF, QD (1 AND 1/2 TABLETS BY MOUTH DAILY)
     Route: 048
     Dates: start: 20240530
  22. SODIUM CHLORIDE [Concomitant]
     Active Substance: SODIUM CHLORIDE
     Indication: Factor VIII deficiency
  23. KENALOG [Concomitant]
     Active Substance: TRIAMCINOLONE ACETONIDE
     Route: 061
     Dates: start: 20240508
  24. PROTONIX [Concomitant]
     Active Substance: PANTOPRAZOLE SODIUM
     Dosage: 1 DF, QD (TAKE 1 TABLET BY MOUTH EVERY MORNING (BEFORE BREAKFAST))
     Route: 048
     Dates: start: 20240906, end: 20241011

REACTIONS (19)
  - Acute myocardial infarction [Recovered/Resolved]
  - Dyspnoea exertional [Recovering/Resolving]
  - Chest pain [Recovering/Resolving]
  - Pain [Unknown]
  - Condition aggravated [Unknown]
  - Back pain [Recovering/Resolving]
  - Troponin increased [Unknown]
  - Exercise electrocardiogram abnormal [Unknown]
  - Coronary artery disease [Recovering/Resolving]
  - Dilatation atrial [Recovered/Resolved]
  - Factor VIII activity decreased [Unknown]
  - Headache [Recovered/Resolved]
  - COVID-19 [Recovered/Resolved]
  - Sensory disturbance [Unknown]
  - Skin haemorrhage [Recovered/Resolved]
  - Vascular rupture [Recovered/Resolved]
  - Arthralgia [Unknown]
  - Limb injury [Unknown]
  - Inappropriate schedule of product administration [Unknown]

NARRATIVE: CASE EVENT DATE: 20240101
